FAERS Safety Report 4426211-7 (Version None)
Quarter: 2004Q3

REPORT INFORMATION
  Report Type: 
  Country: None (occurrence: None)
  Receive Date: 20040811
  Receipt Date: 20040730
  Transmission Date: 20050211
  Serious: Yes (Other)
  Sender: FDA-Public Use
  Company Number: 2004226233US

PATIENT
  Age: 54 Year
  Sex: Male
  Weight: 83.9 kg

DRUGS (3)
  1. DETROL LA [Suspect]
     Indication: HYPERTONIC BLADDER
     Dosage: 2 MG, QD, ORAL
     Route: 048
     Dates: start: 20040716, end: 20040723
  2. DETROL LA [Suspect]
     Indication: HYPERTONIC BLADDER
     Dosage: 2 MG, QD, ORAL
     Route: 048
     Dates: start: 20040727
  3. GLUCOSAMINE W/CHONDROITIN SULFATES (MANGANESE) [Concomitant]

REACTIONS (1)
  - BLOOD URINE [None]
